FAERS Safety Report 22256996 (Version 5)
Quarter: 2024Q4

REPORT INFORMATION
  Report Type: Report from Study
  Country: CA (occurrence: CA)
  Receive Date: 20230427
  Receipt Date: 20241108
  Transmission Date: 20250115
  Serious: Yes (Other)
  Sender: JOHNSON AND JOHNSON
  Company Number: CA-JNJFOC-20220961856

PATIENT
  Age: 16 Year
  Sex: Male
  Weight: 46.5 kg

DRUGS (2)
  1. REMICADE [Suspect]
     Active Substance: INFLIXIMAB
     Indication: Crohn^s disease
     Dosage: BATCH: MBM80011, EXPIRY: JAN-2025, BATCH: MCM890 EXPIRY: FEB-2025, AUG-2025, BATCH: MIM21013
     Route: 041
     Dates: start: 20190720
  2. HYDROCORTISONE [Concomitant]
     Active Substance: HYDROCORTISONE
     Indication: Premedication
     Route: 065

REACTIONS (11)
  - Crohn^s disease [Unknown]
  - Flatulence [Not Recovered/Not Resolved]
  - Musculoskeletal stiffness [Unknown]
  - Weight decreased [Unknown]
  - Discomfort [Unknown]
  - Chest discomfort [Unknown]
  - Arthralgia [Not Recovered/Not Resolved]
  - Product dose omission issue [Unknown]
  - Inappropriate schedule of product administration [Unknown]
  - Incorrect dose administered [Unknown]
  - Off label use [Unknown]

NARRATIVE: CASE EVENT DATE: 20220101
